FAERS Safety Report 7684164 (Version 2)
Quarter: 2012Q4

REPORT INFORMATION
  Report Type: 
  Country: CN (occurrence: CN)
  Receive Date: 20101129
  Receipt Date: 20120913
  Transmission Date: 20130627
  Serious: Yes (Death, Other)
  Sender: FDA-Public Use
  Company Number: CN-RANBAXY-2010R1-39706

PATIENT
  Age: 41 Year
  Sex: Male

DRUGS (2)
  1. PHENOBARBITAL [Suspect]
     Indication: PRODUCT USED FOR UNKNOWN INDICATION
     Dosage: 400 UNK, UNK
     Route: 042
     Dates: start: 1993
  2. PHENOBARBITAL [Suspect]
     Dosage: UNK
     Route: 065
     Dates: start: 2001

REACTIONS (1)
  - Drug eruption [Recovered/Resolved]
